FAERS Safety Report 24267311 (Version 1)
Quarter: 2024Q3

REPORT INFORMATION
  Report Type: Spontaneous
  Country: FR (occurrence: FR)
  Receive Date: 20240830
  Receipt Date: 20240830
  Transmission Date: 20241016
  Serious: Yes (Hospitalization)
  Sender: RANBAXY
  Company Number: FR-AFSSAPS-TS2024000687

PATIENT
  Age: 53 Year
  Sex: Female
  Weight: 72 kg

DRUGS (6)
  1. ACETAMINOPHEN [Suspect]
     Active Substance: ACETAMINOPHEN
     Indication: Pain
     Dosage: 1 GRAM, BID
     Route: 048
     Dates: start: 20240417, end: 20240418
  2. PRIMPERAN [Suspect]
     Active Substance: METOCLOPRAMIDE HYDROCHLORIDE
     Indication: Vomiting
     Dosage: 10 MILLIGRAM, BID
     Route: 048
     Dates: start: 20240418, end: 20240419
  3. OPDIVO [Suspect]
     Active Substance: NIVOLUMAB
     Indication: Clear cell renal cell carcinoma
     Dosage: 215 MILLIGRAM, 1DOSE/21DAYS
     Route: 040
     Dates: start: 20240416, end: 20240416
  4. OXYCODONE [Suspect]
     Active Substance: OXYCODONE
     Indication: Pain
     Dosage: 5 MILLIGRAM, IN TOTAL
     Route: 048
     Dates: start: 20240417, end: 20240417
  5. MORPHINE SULFATE [Suspect]
     Active Substance: MORPHINE SULFATE
     Indication: Pain
     Dosage: 5 MILLIGRAM, 1DOSE/ASNECESSA
     Route: 048
     Dates: start: 20240416, end: 20240417
  6. YERVOY [Suspect]
     Active Substance: IPILIMUMAB
     Indication: Clear cell renal cell carcinoma
     Dosage: 72.5 MILLIGRAM, 1DOSE/21DAYS
     Route: 040
     Dates: start: 20240416, end: 20240416

REACTIONS (2)
  - Tubulointerstitial nephritis [Recovering/Resolving]
  - Renal tubular necrosis [Recovering/Resolving]

NARRATIVE: CASE EVENT DATE: 20240424
